FAERS Safety Report 24222885 (Version 1)
Quarter: 2024Q3

REPORT INFORMATION
  Report Type: Report from Study
  Country: US (occurrence: US)
  Receive Date: 20240819
  Receipt Date: 20240819
  Transmission Date: 20241017
  Serious: No
  Sender: GUERBET
  Company Number: US-GUERBET / LLC-US-20240088

PATIENT

DRUGS (4)
  1. LIPIODOL [Suspect]
     Active Substance: ETHIODIZED OIL
     Indication: Lymphangiogram
     Dosage: MAXIMUM TOTAL VOLUME OF 20 ML OF LIPIODOL MIXED WITH NBCA.?RATIO OF USED NBCA TO ETHIODIZED OIL RANG
     Route: 027
  2. LIPIODOL [Suspect]
     Active Substance: ETHIODIZED OIL
     Indication: Therapeutic embolisation
  3. ENBUCRILATE [Suspect]
     Active Substance: ENBUCRILATE
     Indication: Lymphangiogram
     Dosage: MAXIMUM TOTAL VOLUME OF 20 ML OF LIPIODOL MIXED WITH NBCA AT RATIO OF 1:1 TO 1:8 (OVERALL 0.5 - 3 ML
     Route: 027
  4. ENBUCRILATE [Suspect]
     Active Substance: ENBUCRILATE
     Indication: Therapeutic embolisation

REACTIONS (2)
  - Product use in unapproved indication [Unknown]
  - Device dislocation [Unknown]
